FAERS Safety Report 11148420 (Version 1)
Quarter: 2015Q2

REPORT INFORMATION
  Report Type: Report from Study
  Country: NL (occurrence: NL)
  Receive Date: 20150529
  Receipt Date: 20150529
  Transmission Date: 20150821
  Serious: Yes (Other)
  Sender: FDA-Public Use
  Company Number: NL-BAYER-2015-250315

PATIENT
  Age: 67 Year
  Sex: Male

DRUGS (4)
  1. METFORMIN [Concomitant]
     Active Substance: METFORMIN HYDROCHLORIDE
     Indication: NON-SMALL CELL LUNG CANCER
     Dosage: 1000 MG, BID
     Route: 048
     Dates: start: 2013
  2. SORAFENIB (RAF KINASE INHIBITOR) [Suspect]
     Active Substance: SORAFENIB
     Indication: NON-SMALL CELL LUNG CANCER
     Dosage: 200 MG, BID
  3. SORAFENIB (RAF KINASE INHIBITOR) [Suspect]
     Active Substance: SORAFENIB
     Indication: NON-SMALL CELL LUNG CANCER
     Dosage: 400 MG, BID
     Route: 048
     Dates: start: 2013
  4. SORAFENIB (RAF KINASE INHIBITOR) [Suspect]
     Active Substance: SORAFENIB
     Indication: NON-SMALL CELL LUNG CANCER
     Dosage: 200 MG, BID

REACTIONS (3)
  - Dysphagia [None]
  - Oesophageal ulcer [None]
  - Oesophageal stenosis [None]

NARRATIVE: CASE EVENT DATE: 2013
